FAERS Safety Report 12779766 (Version 1)
Quarter: 2016Q3

REPORT INFORMATION
  Report Type: Spontaneous
  Country: US (occurrence: US)
  Receive Date: 20160926
  Receipt Date: 20160926
  Transmission Date: 20161109
  Serious: No
  Sender: FDA-Public Use
  Company Number: US-PFIZER INC-2016448745

PATIENT
  Sex: Female

DRUGS (3)
  1. INOSITOL [Suspect]
     Active Substance: INOSITOL
     Dosage: UNK
  2. CELEBREX [Suspect]
     Active Substance: CELECOXIB
     Dosage: UNK
  3. GASTRIX [Suspect]
     Active Substance: PANCRELIPASE
     Dosage: UNK

REACTIONS (12)
  - Muscular weakness [Not Recovered/Not Resolved]
  - Wrong technique in product usage process [None]
  - Chills [Not Recovered/Not Resolved]
  - Diarrhoea [Not Recovered/Not Resolved]
  - Paraesthesia [Not Recovered/Not Resolved]
  - Oral discomfort [Not Recovered/Not Resolved]
  - Malaise [Not Recovered/Not Resolved]
  - Decreased appetite [Not Recovered/Not Resolved]
  - Nausea [Not Recovered/Not Resolved]
  - Dyspepsia [Not Recovered/Not Resolved]
  - Burn oesophageal [Not Recovered/Not Resolved]
  - Feeling abnormal [Not Recovered/Not Resolved]
